FAERS Safety Report 7158511-4 (Version None)
Quarter: 2010Q4

REPORT INFORMATION
  Report Type: 
  Country: None (occurrence: None)
  Receive Date: 20101214
  Receipt Date: 20100511
  Transmission Date: 20110411
  Serious: No
  Sender: FDA-Public Use
  Company Number: US-ASTRAZENECA-2010SE21508

PATIENT
  Age: 67 Year
  Sex: Female
  Weight: 89.8 kg

DRUGS (1)
  1. CRESTOR [Suspect]
     Indication: HYPERCHOLESTEROLAEMIA
     Route: 048
     Dates: start: 20100508, end: 20100509

REACTIONS (5)
  - CHEST DISCOMFORT [None]
  - DIZZINESS [None]
  - MICTURITION URGENCY [None]
  - PHARYNGEAL OEDEMA [None]
  - SWOLLEN TONGUE [None]
